FAERS Safety Report 4646022-7 (Version None)
Quarter: 2005Q2

REPORT INFORMATION
  Report Type: 
  Country: None (occurrence: None)
  Receive Date: 20050422
  Receipt Date: 20050422
  Transmission Date: 20051028
  Serious: Yes (Disabling)
  Sender: FDA-Public Use
  Company Number: None

PATIENT
  Age: 79 Year
  Sex: Male
  Weight: 72.5755 kg

DRUGS (1)
  1. LIPITOR [Suspect]
     Dosage: ONCE A DAY AT NIGHT ORAL
     Route: 048
     Dates: start: 19960509, end: 20041001

REACTIONS (3)
  - AMNESIA [None]
  - CONFUSIONAL STATE [None]
  - MYALGIA [None]
